FAERS Safety Report 10494169 (Version 1)
Quarter: 2014Q4

REPORT INFORMATION
  Report Type: Spontaneous
  Country: US (occurrence: None)
  Receive Date: 20141002
  Receipt Date: 20141002
  Transmission Date: 20150528
  Serious: No
  Sender: FDA-Public Use
  Company Number: None

PATIENT
  Sex: Male

DRUGS (5)
  1. HALDOL [Suspect]
     Active Substance: HALOPERIDOL
  2. RISPERDAL [Suspect]
     Active Substance: RISPERIDONE
  3. OLANZAPINE. [Suspect]
     Active Substance: OLANZAPINE
  4. BENZTROPINE [Suspect]
     Active Substance: BENZTROPINE
  5. FLUPHENAZINE [Suspect]
     Active Substance: FLUPHENAZINE
     Route: 048

REACTIONS (2)
  - Hallucination, auditory [None]
  - Nervousness [None]

NARRATIVE: CASE EVENT DATE: 2014
